FAERS Safety Report 4422426-2 (Version None)
Quarter: 2004Q3

REPORT INFORMATION
  Report Type: 
  Country: None (occurrence: None)
  Receive Date: 20040806
  Receipt Date: 20040719
  Transmission Date: 20050211
  Serious: Yes (Death, Life-Threatening, Hospitalization, Other)
  Sender: FDA-Public Use
  Company Number: US_0407104399

PATIENT
  Age: 53 Year
  Sex: Male

DRUGS (14)
  1. HUMALOG [Suspect]
  2. HUMULIN-HUMAN INSULIN (RDNA) UNKNOWN FORMULATION (HU [Suspect]
  3. MICARDIS [Concomitant]
  4. COZAAR [Concomitant]
  5. FUROSEMIDE [Concomitant]
  6. ZAROXOLYN [Concomitant]
  7. ZOLOFT [Concomitant]
  8. PLAVIX [Concomitant]
  9. TOPROL-XL [Concomitant]
  10. ISOSORBIDE [Concomitant]
  11. SODIUM BICARBONATE [Concomitant]
  12. NEURONTIN [Concomitant]
  13. STADOL [Concomitant]
  14. .... [Concomitant]

REACTIONS (5)
  - CARDIAC ARREST [None]
  - CARDIAC FAILURE CONGESTIVE [None]
  - HAEMODIALYSIS [None]
  - PNEUMONIA [None]
  - RENAL FAILURE CHRONIC [None]
